FAERS Safety Report 9551337 (Version 1)
Quarter: 2013Q2

REPORT INFORMATION
  Report Type: Spontaneous
  Country: US (occurrence: None)
  Receive Date: 20130627
  Receipt Date: 20130627
  Transmission Date: 20140414
  Serious: No
  Sender: FDA-Public Use
  Company Number: 1000045380

PATIENT
  Age: 81 Year
  Sex: Female

DRUGS (1)
  1. LINZESS (LINACLOTIDE) (145 MICROGRAM CAPSULES) [Suspect]
     Route: 048
     Dates: start: 20130518, end: 20130518

REACTIONS (4)
  - Nausea [None]
  - Eructation [None]
  - Frequent bowel movements [None]
  - Insomnia [None]
